FAERS Safety Report 18082762 (Version 1)
Quarter: 2020Q3

REPORT INFORMATION
  Report Type: Spontaneous
  Country: US (occurrence: US)
  Receive Date: 20200728
  Receipt Date: 20200728
  Transmission Date: 20201103
  Serious: Yes (Disabling, Other)
  Sender: FDA-Public Use
  Company Number: US-PURDUE-USA-2020-0159606

PATIENT

DRUGS (2)
  1. OXYCONTIN [Suspect]
     Active Substance: OXYCODONE HYDROCHLORIDE
     Indication: PRODUCT USED FOR UNKNOWN INDICATION
     Dosage: UNK
     Route: 048
  2. HEROIN [Suspect]
     Active Substance: DIAMORPHINE
     Indication: PRODUCT USED FOR UNKNOWN INDICATION
     Dosage: UNK
     Route: 065

REACTIONS (16)
  - Victim of sexual abuse [Unknown]
  - Imprisonment [Unknown]
  - Withdrawal syndrome [Unknown]
  - Wound [Unknown]
  - Self esteem decreased [Unknown]
  - Subcutaneous abscess [Unknown]
  - Infection [Unknown]
  - Dependence [Unknown]
  - Crime [Unknown]
  - Injury [Unknown]
  - Scar [Unknown]
  - Overdose [Unknown]
  - Loss of consciousness [Unknown]
  - Disability [Unknown]
  - Depression [Unknown]
  - Anxiety [Unknown]
